FAERS Safety Report 14607272 (Version 6)
Quarter: 2019Q2

REPORT INFORMATION
  Report Type: Spontaneous
  Country: US (occurrence: US)
  Receive Date: 20180307
  Receipt Date: 20190501
  Transmission Date: 20190711
  Serious: No
  Sender: FDA-Public Use
  Company Number: US-PFIZER INC-2017362682

PATIENT
  Age: 77 Year
  Sex: Male
  Weight: 125 kg

DRUGS (28)
  1. ZOCOR [Concomitant]
     Active Substance: SIMVASTATIN
     Indication: BLOOD CHOLESTEROL ABNORMAL
     Dosage: 40 MG, 1X/DAY, (1EA, PM)
  2. METOPROLOL. [Concomitant]
     Active Substance: METOPROLOL
     Dosage: 50 MG, 2X/DAY (1AM + 1 PM = 2 A DAY-50 MG EACH)
  3. METFORMIN [Concomitant]
     Active Substance: METFORMIN HYDROCHLORIDE
     Indication: DIABETES MELLITUS
     Dosage: 1000 MG, 2X/DAY (2 A DAY-1 AM + 1PM PER DAY)
  4. SPIRIVA [Concomitant]
     Active Substance: TIOTROPIUM BROMIDE MONOHYDRATE
     Dosage: 18 UG, 1X/DAY, (1AM)
  5. LORATADINE. [Concomitant]
     Active Substance: LORATADINE
     Indication: HYPERSENSITIVITY
     Dosage: 10 MG, 1X/DAY
  6. SERTRALINE [Concomitant]
     Active Substance: SERTRALINE HYDROCHLORIDE
     Indication: DEPRESSION
     Dosage: 50 MG, 1X/DAY  (IN THE MORNING)
     Route: 048
  7. LEVEMIR [Concomitant]
     Active Substance: INSULIN DETEMIR
     Indication: DIABETES MELLITUS
     Dosage: 25 MG, 1X/DAY (IN THE EVENING)
  8. LYRICA [Suspect]
     Active Substance: PREGABALIN
     Indication: NEURALGIA
  9. GLIPIZIDE. [Concomitant]
     Active Substance: GLIPIZIDE
     Indication: DIABETES MELLITUS
     Dosage: 10 MG, 2X/DAY (1 AM +1 PM= 2A DAY-10 MG EACH)
  10. GABAPENTIN. [Concomitant]
     Active Substance: GABAPENTIN
     Dosage: 600 MG, 2X/DAY, (2-AM/2-PM=4 A DAY-75 MG (FEET))
  11. CITALOPRAM [Concomitant]
     Active Substance: CITALOPRAM HYDROBROMIDE
     Dosage: 40 MG, 1X/DAY (AM-40 MGX1)
  12. PLAVIX [Concomitant]
     Active Substance: CLOPIDOGREL BISULFATE
     Dosage: UNK, 1X/DAY ( IN THE MORNING)
  13. B COMPLEX WITH C [Concomitant]
     Dosage: 1 DF, 1X/DAY, (1 A DAY AM)
  14. FAMOTIDINE. [Concomitant]
     Active Substance: FAMOTIDINE
     Dosage: 15 MG, 1X/DAY, (1 DAY PM-15 MG)
  15. LOSARTAN. [Concomitant]
     Active Substance: LOSARTAN
     Dosage: 12.5 MG, 1X/DAY, (AM 1/2 TAB)
  16. HYDROCODONE BITARTRATE AND ACETAMINOPHEN [Concomitant]
     Active Substance: ACETAMINOPHEN\HYDROCODONE BITARTRATE
     Dosage: 1 DF, AS NEEDED, (1 WHEN NEEDED)
  17. TRESIBA [Concomitant]
     Active Substance: INSULIN DEGLUDEC
     Dosage: UNK, PM, 1X/DAY
  18. ZOCOR [Concomitant]
     Active Substance: SIMVASTATIN
     Dosage: 80 MG, UNK
  19. PLAVIX [Concomitant]
     Active Substance: CLOPIDOGREL BISULFATE
     Indication: ANTICOAGULANT THERAPY
     Dosage: 75 MG, 1X/DAY (AM-75 MGX1)
  20. PREVACID [Concomitant]
     Active Substance: LANSOPRAZOLE
     Dosage: 15 MG, 1X/DAY, (1 DAY PM-15 MG)
  21. OXYCODONE [Concomitant]
     Active Substance: OXYCODONE
     Indication: PAIN
     Dosage: 7.5 MG, AS NEEDED
     Route: 048
  22. NOVOLOG [Concomitant]
     Active Substance: INSULIN ASPART
     Indication: DIABETES MELLITUS
     Dosage: UNK, (SLIDING SCALE)
  23. METFORMIN [Concomitant]
     Active Substance: METFORMIN HYDROCHLORIDE
     Dosage: 100 MG, 2X/DAY (ONCE IN THE MORNING AND ONCE AT NIGHT)
     Route: 048
  24. MELATONIN PLUS [Concomitant]
     Indication: SLEEP DISORDER
     Dosage: UNK UNK, AS NEEDED (NEED-5 MG MELATONIN+25 MG THEANINE)
  25. LYRICA [Suspect]
     Active Substance: PREGABALIN
     Indication: NEURITIS
  26. MELATONIN [Concomitant]
     Active Substance: MELATONIN
     Indication: SLEEP DISORDER
     Dosage: 10 MG, 1X/DAY (AT NIGHT TIME BEFORE BED)
     Route: 048
  27. LYRICA [Suspect]
     Active Substance: PREGABALIN
     Indication: NEUROPATHY PERIPHERAL
     Dosage: 75 MG, 2X/DAY (2 A DAY 1 AM + 1 PM)
     Route: 048
     Dates: start: 2017
  28. FISH OIL OMEGA 3 [Concomitant]
     Active Substance: FISH OIL
     Dosage: UNK, 1X/DAY (1200-PM)

REACTIONS (2)
  - Hypoacusis [Unknown]
  - Pain in extremity [Not Recovered/Not Resolved]

NARRATIVE: CASE EVENT DATE: 20180305
